FAERS Safety Report 7977988-5 (Version None)
Quarter: 2011Q4

REPORT INFORMATION
  Report Type: 
  Country: None (occurrence: None)
  Receive Date: 20111214
  Receipt Date: 20111207
  Transmission Date: 20120403
  Serious: No
  Sender: FDA-Public Use
  Company Number: US-BIOGENIDEC-2011BI046564

PATIENT
  Age: 37 Year
  Sex: Female

DRUGS (1)
  1. TYSABRI [Suspect]
     Indication: MULTIPLE SCLEROSIS
     Route: 042
     Dates: start: 20110906

REACTIONS (7)
  - SKIN HAEMORRHAGE [None]
  - DRY SKIN [None]
  - PARAESTHESIA [None]
  - LIP SWELLING [None]
  - SWELLING FACE [None]
  - OEDEMA PERIPHERAL [None]
  - PARAESTHESIA ORAL [None]
